FAERS Safety Report 9418309 (Version 1)
Quarter: 2013Q3

REPORT INFORMATION
  Report Type: Report from Study
  Country: PL (occurrence: PL)
  Receive Date: 20130725
  Receipt Date: 20130725
  Transmission Date: 20140515
  Serious: Yes (Hospitalization)
  Sender: FDA-Public Use
  Company Number: PL-ROCHE-1204938

PATIENT
  Age: 36 Year
  Sex: Female
  Weight: 54 kg

DRUGS (2)
  1. PEG-INTERFERON ALFA 2A [Suspect]
     Indication: CHRONIC HEPATITIS B
     Route: 058
     Dates: start: 20121025, end: 20130327
  2. HYDROCORTISON [Concomitant]
     Indication: SKIN LESION
     Route: 023
     Dates: start: 20130213, end: 20130227

REACTIONS (5)
  - Aspartate aminotransferase increased [Recovered/Resolved]
  - Hyperbilirubinaemia [Recovered/Resolved]
  - Alanine aminotransferase increased [Recovered/Resolved]
  - Hepatitis [Recovered/Resolved]
  - Erythema [Recovered/Resolved]
